FAERS Safety Report 8440963 (Version 2)
Quarter: 2012Q4

REPORT INFORMATION
  Report Type: 
  Country: BR (occurrence: BR)
  Receive Date: 20120305
  Receipt Date: 20121024
  Transmission Date: 20130627
  Serious: Yes (Death, Hospitalization)
  Sender: FDA-Public Use
  Company Number: BR-ACTELION-A-CH2012-61673

PATIENT
  Age: 56 Year
  Sex: Female

DRUGS (1)
  1. TRACLEER [Suspect]
     Indication: PULMONARY ARTERIAL HYPERTENSION
     Dosage: 125 mg, bid
     Route: 048
     Dates: end: 20120628

REACTIONS (3)
  - Cardiac arrest [Fatal]
  - Pulmonary arterial hypertension [Recovering/Resolving]
  - Condition aggravated [Recovering/Resolving]
